FAERS Safety Report 9446986 (Version 1)
Quarter: 2013Q3

REPORT INFORMATION
  Report Type: Spontaneous
  Country: US (occurrence: US)
  Receive Date: 20130807
  Receipt Date: 20130807
  Transmission Date: 20140515
  Serious: No
  Sender: FDA-Public Use
  Company Number: US-AMGEN-USASP2013046498

PATIENT
  Age: 25 Year
  Sex: Female
  Weight: 75.28 kg

DRUGS (5)
  1. ENBREL [Suspect]
     Indication: PSORIASIS
     Dosage: 50 MG, 2 TIMES/WK
     Route: 058
  2. CLOBETASOL [Concomitant]
     Indication: PSORIASIS
     Dosage: UNK UNK, BID
     Route: 061
  3. PRILOSEC                           /00661201/ [Concomitant]
     Indication: GASTROOESOPHAGEAL REFLUX DISEASE
     Dosage: 50 MG, QD
     Route: 048
  4. REGLAN                             /00041901/ [Concomitant]
     Dosage: 10 MG, QD
     Route: 048
  5. AVIANE [Concomitant]
     Indication: CONTRACEPTION
     Dosage: UNK UNK, QD
     Route: 048

REACTIONS (3)
  - Inappropriate schedule of drug administration [Recovered/Resolved]
  - Injection site urticaria [Not Recovered/Not Resolved]
  - Injection site reaction [Recovered/Resolved]
